FAERS Safety Report 16015445 (Version 2)
Quarter: 2020Q1

REPORT INFORMATION
  Report Type: Spontaneous
  Country: US (occurrence: US)
  Receive Date: 20190228
  Receipt Date: 20200113
  Transmission Date: 20200409
  Serious: No
  Sender: FDA-Public Use
  Company Number: PHEH2019US008699

PATIENT
  Sex: Female

DRUGS (2)
  1. TYKERB [Suspect]
     Active Substance: LAPATINIB DITOSYLATE
     Indication: BREAST CANCER FEMALE
     Dosage: 500 MG, DAILY X3W ON, 1 W OFF
     Route: 048
     Dates: start: 20180307
  2. TYKERB [Suspect]
     Active Substance: LAPATINIB DITOSYLATE
     Dosage: 1000 MG, QD
     Route: 048
     Dates: start: 20190126

REACTIONS (3)
  - Peripheral swelling [Unknown]
  - Palmar-plantar erythrodysaesthesia syndrome [Unknown]
  - Dry skin [Unknown]
